FAERS Safety Report 6417727-2 (Version None)
Quarter: 2009Q4

REPORT INFORMATION
  Report Type: 
  Country: None (occurrence: None)
  Receive Date: 20091027
  Receipt Date: 20091027
  Transmission Date: 20100525
  Serious: Yes (Hospitalization)
  Sender: FDA-Public Use
  Company Number: None

PATIENT
  Sex: Male
  Weight: 85 kg

DRUGS (12)
  1. MEROPENEM [Suspect]
     Indication: MENINGITIS
     Dosage: 2G IV Q 8?
     Route: 042
     Dates: start: 20090805
  2. INSULIN ASPART [Concomitant]
  3. BISACODYL [Concomitant]
  4. ACETAMINOPHEN [Concomitant]
  5. SENNA [Concomitant]
  6. METOPROLOL [Concomitant]
  7. LEVETIRACETAM [Concomitant]
  8. HEPARIN [Concomitant]
  9. LANSOPRAZOLE [Concomitant]
  10. LACTOBACILLUS [Concomitant]
  11. VANCOMYCIN [Concomitant]
  12. WARFARIN SODIUM [Concomitant]

REACTIONS (3)
  - INFECTION SUSCEPTIBILITY INCREASED [None]
  - SERRATIA INFECTION [None]
  - WHITE BLOOD CELL COUNT DECREASED [None]
